FAERS Safety Report 9928529 (Version 1)
Quarter: 2014Q1

REPORT INFORMATION
  Report Type: Spontaneous
  Country: US (occurrence: None)
  Receive Date: 20140226
  Receipt Date: 20140226
  Transmission Date: 20141002
  Serious: Yes (Hospitalization)
  Sender: FDA-Public Use
  Company Number: None

PATIENT
  Age: 64 Year
  Sex: Female
  Weight: 113.9 kg

DRUGS (11)
  1. ALFA 2 INTERFERON 2B (INTRON-A) [Suspect]
     Dosage: 220 MU
     Dates: end: 20130222
  2. ATIVAN [Concomitant]
  3. CELEXA [Concomitant]
  4. COLACE [Concomitant]
  5. DEXILANT [Concomitant]
  6. GABAPENTIN [Concomitant]
  7. IBU [Concomitant]
  8. LOSARTAN/HCTZ [Concomitant]
  9. PRAVASTATIN [Concomitant]
  10. PROCHLORPERAZINE [Concomitant]
  11. ZOFRAN [Concomitant]

REACTIONS (1)
  - Sinusitis [None]
